FAERS Safety Report 14693864 (Version 2)
Quarter: 2019Q1

REPORT INFORMATION
  Report Type: Spontaneous
  Country: US (occurrence: US)
  Receive Date: 20180329
  Receipt Date: 20190328
  Transmission Date: 20190417
  Serious: Yes (Other)
  Sender: FDA-Public Use
  Company Number: US-GLAXOSMITHKLINE-US2018GSK053348

PATIENT
  Sex: Male

DRUGS (2)
  1. PREVACID [Suspect]
     Active Substance: LANSOPRAZOLE
     Indication: PRODUCT USED FOR UNKNOWN INDICATION
     Dosage: UNK
     Route: 065
  2. PREVACID [Suspect]
     Active Substance: LANSOPRAZOLE
     Indication: PRODUCT USED FOR UNKNOWN INDICATION
     Dosage: UNK
     Route: 065

REACTIONS (14)
  - Haematuria [Unknown]
  - Renal impairment [Unknown]
  - End stage renal disease [Unknown]
  - Pollakiuria [Unknown]
  - Glomerulonephritis membranoproliferative [Unknown]
  - Renal disorder [Unknown]
  - Acute kidney injury [Unknown]
  - Azotaemia [Unknown]
  - Renal artery stenosis [Unknown]
  - Chronic kidney disease [Unknown]
  - Blood creatinine increased [Unknown]
  - Nephropathy [Unknown]
  - Proteinuria [Unknown]
  - Renal pain [Unknown]
